FAERS Safety Report 7609943-9 (Version None)
Quarter: 2011Q3

REPORT INFORMATION
  Report Type: 
  Country: None (occurrence: None)
  Receive Date: 20110714
  Receipt Date: 20110316
  Transmission Date: 20111222
  Serious: No
  Sender: FDA-Public Use
  Company Number: US-TYCO HEALTHCARE/MALLINCKRODT-T201100611

PATIENT
  Age: 45 Year
  Sex: Female

DRUGS (3)
  1. VOLTAREN [Concomitant]
  2. OXYCODONE HCL [Suspect]
     Indication: PAIN
     Dosage: 1 Q 4 HRS
     Route: 048
     Dates: start: 20110310
  3. FLEXERIL [Concomitant]

REACTIONS (2)
  - DRUG EFFECT DECREASED [None]
  - FATIGUE [None]
